FAERS Safety Report 7276346-9 (Version None)
Quarter: 2011Q1

REPORT INFORMATION
  Report Type: 
  Country: None (occurrence: None)
  Receive Date: 20110204
  Receipt Date: 20110127
  Transmission Date: 20110831
  Serious: Yes (Hospitalization)
  Sender: FDA-Public Use
  Company Number: US-US-EMD SERONO, INC.-230017J10USA

PATIENT
  Sex: Female
  Weight: 73 kg

DRUGS (10)
  1. REBIF [Suspect]
     Indication: RELAPSING-REMITTING MULTIPLE SCLEROSIS
     Route: 058
     Dates: start: 20090821, end: 20091201
  2. DETROL [Concomitant]
     Indication: POLLAKIURIA
  3. BACLOFEN [Concomitant]
     Indication: MUSCLE SPASMS
  4. EFFEXOR [Concomitant]
     Indication: DEPRESSION
  5. REBIF [Suspect]
     Dates: start: 20110101
  6. PROTONIX [Concomitant]
     Route: 065
  7. BACLOFEN [Concomitant]
     Indication: MUSCLE TIGHTNESS
  8. NEURONTIN [Concomitant]
     Route: 065
  9. NORTRIPTYLINE [Concomitant]
     Indication: DEPRESSION
  10. NORTRIPTYLINE [Concomitant]
     Indication: RESTLESS LEGS SYNDROME

REACTIONS (4)
  - DEPRESSION [None]
  - SUICIDAL IDEATION [None]
  - SUICIDE ATTEMPT [None]
  - INTENTIONAL OVERDOSE [None]
